FAERS Safety Report 5149019-6 (Version None)
Quarter: 2006Q4

REPORT INFORMATION
  Report Type: 
  Country: None (occurrence: None)
  Receive Date: 20061113
  Receipt Date: 20060927
  Transmission Date: 20070319
  Serious: Yes (Hospitalization)
  Sender: FDA-Public Use
  Company Number: PHHO2006DE16123

PATIENT
  Age: 55 Year
  Sex: Female
  Weight: 77 kg

DRUGS (5)
  1. ZOLEDRONATE [Suspect]
     Indication: METASTASES TO BONE
     Dosage: 4 MG, EVERY 4 WEEKS
     Route: 042
     Dates: start: 20040407
  2. VITAMIN D [Concomitant]
  3. CALCIUM [Concomitant]
  4. TAMOXIFEN CITRATE [Concomitant]
     Dates: end: 20060601
  5. FEMARA [Concomitant]

REACTIONS (9)
  - ANOREXIA [None]
  - GINGIVAL INFECTION [None]
  - LYMPHADENOPATHY [None]
  - OEDEMA MOUTH [None]
  - ORAL PAIN [None]
  - OSTEOMYELITIS [None]
  - OSTEONECROSIS [None]
  - SEQUESTRECTOMY [None]
  - STOMATITIS [None]
